FAERS Safety Report 8493735-5 (Version None)
Quarter: 2012Q3

REPORT INFORMATION
  Report Type: 
  Country: None (occurrence: None)
  Receive Date: 20120706
  Receipt Date: 20120624
  Transmission Date: 20120928
  Serious: Yes (Other)
  Sender: FDA-Public Use
  Company Number: CHPA2012US013971

PATIENT

DRUGS (1)
  1. EXCEDRIN (MIGRAINE) [Suspect]
     Indication: HEADACHE
     Dosage: 1 DF, UNK
     Route: 048

REACTIONS (3)
  - BENIGN NEOPLASM [None]
  - UNDERDOSE [None]
  - DRUG INEFFECTIVE [None]
